FAERS Safety Report 6568445-1 (Version None)
Quarter: 2010Q1

REPORT INFORMATION
  Report Type: 
  Country: None (occurrence: None)
  Receive Date: 20100203
  Receipt Date: 20100128
  Transmission Date: 20100710
  Serious: Yes (Other)
  Sender: FDA-Public Use
  Company Number: A0839746A

PATIENT
  Age: 61 Year
  Sex: Female

DRUGS (3)
  1. PAROXETINE HCL [Suspect]
     Indication: DEPRESSION
     Dosage: 20MG TWICE PER DAY
     Route: 048
  2. ALPRAZOLAM [Concomitant]
  3. NORTRIPTYLINE HCL [Concomitant]

REACTIONS (2)
  - MYCOSIS FUNGOIDES [None]
  - RASH [None]
